FAERS Safety Report 10233021 (Version 2)
Quarter: 2014Q2

REPORT INFORMATION
  Report Type: Spontaneous
  Country: US (occurrence: US)
  Receive Date: 20140612
  Receipt Date: 20140612
  Transmission Date: 20141212
  Serious: No
  Sender: FDA-Public Use
  Company Number: US-PFIZER INC-2014053725

PATIENT
  Age: 48 Year
  Sex: Female

DRUGS (3)
  1. ELLENCE [Suspect]
     Dosage: 50 MG/M2, ONCE A WEEK FOR 6 WEEKS
     Dates: end: 20080118
  2. XELODA [Concomitant]
     Dosage: WEEKLY (FOR SIX WEEKS)
  3. CISPLATIN [Concomitant]
     Dosage: WEEKLY (FOR SIX WEEKS)

REACTIONS (2)
  - Transaminases increased [Unknown]
  - Blood test abnormal [Unknown]
